FAERS Safety Report 7474584-3 (Version None)
Quarter: 2011Q2

REPORT INFORMATION
  Report Type: 
  Country: None (occurrence: None)
  Receive Date: 20110503
  Receipt Date: 20110418
  Transmission Date: 20111010
  Serious: Yes (Hospitalization, Disabling)
  Sender: FDA-Public Use
  Company Number: 026785

PATIENT
  Age: 84 Year
  Sex: Male

DRUGS (11)
  1. MOVICOL /01749801/ [Concomitant]
  2. ROPINIROLE [Suspect]
     Indication: RESTLESS LEGS SYNDROME
     Dosage: SEE IMAGE
  3. PALLADON /00080902/ [Concomitant]
  4. MAGNESIUM [Concomitant]
  5. NEUPRO [Suspect]
     Indication: RESTLESS LEGS SYNDROME
     Dosage: SEE IMAGE
     Route: 062
  6. MOLSIDOMIN [Concomitant]
  7. AGIOLAX /00029101/ [Concomitant]
  8. PANTOZOL /01263202/ [Concomitant]
  9. LAXATIVES [Concomitant]
  10. MARCUMAR [Concomitant]
  11. SPECIFIC ANTIRHEUMATIC AGENTS [Concomitant]

REACTIONS (9)
  - AGITATION [None]
  - MOVEMENT DISORDER [None]
  - OFF LABEL USE [None]
  - HEADACHE [None]
  - DIZZINESS [None]
  - CONDITION AGGRAVATED [None]
  - RESTLESS LEGS SYNDROME [None]
  - FATIGUE [None]
  - INSOMNIA [None]
